FAERS Safety Report 10672220 (Version 1)
Quarter: 2014Q4

REPORT INFORMATION
  Report Type: Spontaneous
  Country: None (occurrence: None)
  Receive Date: 20141222
  Receipt Date: 20141222
  Transmission Date: 20150529
  Serious: Yes (Disabling)
  Sender: FDA-Public Use
  Company Number: None

PATIENT
  Age: 60 Year
  Sex: Male
  Weight: 81.65 kg

DRUGS (1)
  1. ATORVASTATIN 40 MG GREENSTONE BRAND [Suspect]
     Active Substance: ATORVASTATIN
     Route: 048
     Dates: start: 20141029, end: 20141213

REACTIONS (4)
  - Arthralgia [None]
  - Myalgia [None]
  - Pain [None]
  - Abasia [None]

NARRATIVE: CASE EVENT DATE: 20141213
